FAERS Safety Report 5157558-7 (Version None)
Quarter: 2006Q4

REPORT INFORMATION
  Report Type: 
  Country: None (occurrence: None)
  Receive Date: 20061127
  Receipt Date: 20061120
  Transmission Date: 20070319
  Serious: Yes (Hospitalization)
  Sender: FDA-Public Use
  Company Number: FR-GLAXOSMITHKLINE-B0447830A

PATIENT
  Age: 48 Year
  Sex: Female

DRUGS (5)
  1. AUGMENTIN '125' [Suspect]
     Dosage: 2G PER DAY
     Route: 042
     Dates: start: 20061009, end: 20061012
  2. CIPROFLOXACIN [Suspect]
     Dosage: 1G PER DAY
     Route: 048
     Dates: start: 20061009, end: 20061012
  3. LEVOTHYROXINE SODIUM [Concomitant]
     Indication: HYPOTHYROIDISM
     Dosage: 137MCG PER DAY
     Route: 048
  4. NOCTRAN [Concomitant]
     Dosage: 10MG PER DAY
     Route: 048
  5. DEROXAT [Concomitant]
     Dosage: 10MG PER DAY
     Route: 048
     Dates: start: 20060926

REACTIONS (2)
  - CLOSTRIDIUM DIFFICILE COLITIS [None]
  - PYREXIA [None]
